FAERS Safety Report 5372377-4 (Version None)
Quarter: 2007Q2

REPORT INFORMATION
  Report Type: 
  Country: None (occurrence: None)
  Receive Date: 20070627
  Receipt Date: 20070621
  Transmission Date: 20071010
  Serious: Yes (Hospitalization, Other)
  Sender: FDA-Public Use
  Company Number: HQWYE733321JUN07

PATIENT
  Sex: Male

DRUGS (3)
  1. CORDARONE [Suspect]
     Indication: ATRIAL FLUTTER
     Route: 048
     Dates: start: 20040101, end: 20070301
  2. SOTALOL HYDROCHLORIDE [Concomitant]
     Dosage: NOT PROVIDED
     Route: 065
     Dates: start: 20070301
  3. ASPIRIN [Concomitant]
     Dosage: NOT PROVIDED
     Route: 065

REACTIONS (2)
  - HYPOTHYROIDISM [None]
  - LUNG DISORDER [None]
